FAERS Safety Report 7276755-8 (Version None)
Quarter: 2011Q1

REPORT INFORMATION
  Report Type: 
  Country: None (occurrence: None)
  Receive Date: 20110206
  Receipt Date: 20110126
  Transmission Date: 20110831
  Serious: Yes (Other)
  Sender: FDA-Public Use
  Company Number: US-BAYER-2011-008505

PATIENT
  Sex: Female

DRUGS (2)
  1. CELEBREX [Concomitant]
     Indication: ARTHRITIS
     Dosage: UNK
     Dates: start: 19980101
  2. ASPIRIN [Suspect]

REACTIONS (2)
  - GASTRIC ULCER [None]
  - ABDOMINAL DISCOMFORT [None]
